FAERS Safety Report 5751332-6 (Version None)
Quarter: 2008Q2

REPORT INFORMATION
  Report Type: 
  Country: None (occurrence: None)
  Receive Date: 20080528
  Receipt Date: 20080516
  Transmission Date: 20081010
  Serious: Yes (Other)
  Sender: FDA-Public Use
  Company Number: DE-PFIZER INC-2008042530

PATIENT
  Sex: Male

DRUGS (1)
  1. LYRICA [Suspect]
     Route: 048

REACTIONS (1)
  - BONE MARROW FAILURE [None]
